FAERS Safety Report 4560988-5 (Version None)
Quarter: 2005Q1

REPORT INFORMATION
  Report Type: 
  Country: None (occurrence: None)
  Receive Date: 20050126
  Receipt Date: 20040511
  Transmission Date: 20050727
  Serious: No
  Sender: FDA-Public Use
  Company Number: US-BRISTOL-MYERS SQUIBB COMPANY-12584918

PATIENT
  Age: 60 Year
  Sex: Male
  Weight: 95 kg

DRUGS (9)
  1. GLUCOPHAGE [Suspect]
     Indication: DIABETES MELLITUS
     Route: 048
     Dates: start: 20040225
  2. LISINOPRIL [Concomitant]
     Dosage: DURATION OF THERAPY:  ^QUITE A WHILE^
  3. SIMVASTATIN [Concomitant]
  4. ASPIRIN [Concomitant]
     Dosage: DURATION OF THERAPY:  ^QUITE A WHILE^
  5. VITAMIN C [Concomitant]
     Dosage: DURATION OF THERAPY:  ^QUITE A WHILE^
  6. VITAMIN E [Concomitant]
     Dosage: DURATION OF THERAPY:  ^QUITE A WHILE^
  7. HYDROCHLOROTHIAZIDE [Concomitant]
     Dosage: DURATION OF THERAPY:  ^QUITE A WHILE^
  8. NOVOLOG [Concomitant]
     Dosage: SLIDING SCALE STARTING AT 5 UNITS, 3X DAY; DURATION OF THERAPY:  ^QUITE A WHILE^
  9. LANTUS [Concomitant]
     Dosage: DOSE = UNITS;  DURATION OF THERAPY:  ^QUITE A WHILE^

REACTIONS (3)
  - ABDOMINAL DISTENSION [None]
  - ERUCTATION [None]
  - FLATULENCE [None]
